FAERS Safety Report 17627847 (Version 2)
Quarter: 2020Q2

REPORT INFORMATION
  Report Type: Report from Study
  Country: None (occurrence: US)
  Receive Date: 20200405
  Receipt Date: 20200505
  Transmission Date: 20200713
  Serious: Yes (Hospitalization, Other)
  Sender: FDA-Public Use
  Company Number: US-ABBVIE-19K-163-2689056-00

PATIENT
  Age: 83 Year
  Sex: Female
  Weight: 54.48 kg

DRUGS (1)
  1. HUMIRA [Suspect]
     Active Substance: ADALIMUMAB
     Indication: RHEUMATOID ARTHRITIS
     Route: 058

REACTIONS (10)
  - Spinal operation [Recovered/Resolved]
  - Spinal operation [Unknown]
  - Nerve compression [Not Recovered/Not Resolved]
  - Sciatica [Unknown]
  - Stomatitis [Unknown]
  - Pain in extremity [Not Recovered/Not Resolved]
  - Dehydration [Unknown]
  - Post procedural complication [Unknown]
  - Drug ineffective [Unknown]
  - Arthralgia [Not Recovered/Not Resolved]

NARRATIVE: CASE EVENT DATE: 20181119
